FAERS Safety Report 15360996 (Version 2)
Quarter: 2018Q4

REPORT INFORMATION
  Report Type: Spontaneous
  Country: US (occurrence: US)
  Receive Date: 20180907
  Receipt Date: 20181022
  Transmission Date: 20190204
  Serious: No
  Sender: FDA-Public Use
  Company Number: US-SA-2018SA248032

PATIENT
  Age: 38 Year
  Sex: Male
  Weight: 115 kg

DRUGS (1)
  1. THYMOGLOBULIN [Suspect]
     Active Substance: LAPINE T-LYMPHOCYTE IMMUNE GLOBULIN
     Indication: KIDNEY TRANSPLANT REJECTION
     Dosage: 150 MG, QD
     Route: 042
     Dates: start: 20180829, end: 20180830

REACTIONS (4)
  - Infection [Unknown]
  - Erythema [Unknown]
  - Infusion site extravasation [Unknown]
  - Pain [Unknown]

NARRATIVE: CASE EVENT DATE: 20180830
